FAERS Safety Report 5739326-8 (Version None)
Quarter: 2008Q2

REPORT INFORMATION
  Report Type: 
  Country: None (occurrence: None)
  Receive Date: 20080512
  Receipt Date: 20070605
  Transmission Date: 20081010
  Serious: Yes (Other)
  Sender: FDA-Public Use
  Company Number: 37828

PATIENT
  Age: 64 Year
  Sex: Female
  Weight: 56.246 kg

DRUGS (1)
  1. PAMIDRONATE DISODIUM [Suspect]
     Indication: OSTEOPOROSIS

REACTIONS (1)
  - PAIN IN JAW [None]
